FAERS Safety Report 17036880 (Version 1)
Quarter: 2019Q4

REPORT INFORMATION
  Report Type: Report from Study
  Country: IT (occurrence: IT)
  Receive Date: 20191115
  Receipt Date: 20191115
  Transmission Date: 20200122
  Serious: Yes (Hospitalization)
  Sender: FDA-Public Use
  Company Number: IT-PFIZER INC-2019492807

PATIENT
  Age: 53 Year
  Sex: Female

DRUGS (2)
  1. ALPRAZOLAM. [Suspect]
     Active Substance: ALPRAZOLAM
     Indication: PSYCHOTIC DISORDER
     Dosage: 20 MG, UNK
     Route: 048
  2. VALPROIC ACID [VALPROATE SODIUM] [Concomitant]
     Active Substance: VALPROATE SODIUM

REACTIONS (4)
  - Toxicity to various agents [Unknown]
  - Product use in unapproved indication [Unknown]
  - Sopor [Unknown]
  - Off label use [Unknown]

NARRATIVE: CASE EVENT DATE: 20190902
